FAERS Safety Report 7150295-9 (Version None)
Quarter: 2010Q4

REPORT INFORMATION
  Report Type: 
  Country: None (occurrence: None)
  Receive Date: 20101210
  Receipt Date: 20101202
  Transmission Date: 20110411
  Serious: Yes (Other)
  Sender: FDA-Public Use
  Company Number: FR-GENZYME-CERZ-1001509

PATIENT

DRUGS (1)
  1. CEREZYME [Suspect]
     Indication: GAUCHER'S DISEASE
     Route: 042

REACTIONS (8)
  - ABDOMINAL PAIN [None]
  - ASTHENIA [None]
  - BONE INFARCTION [None]
  - BONE PAIN [None]
  - CHITOTRIOSIDASE INCREASED [None]
  - HAEMORRHAGE [None]
  - PATHOLOGICAL FRACTURE [None]
  - PLATELET COUNT DECREASED [None]
